FAERS Safety Report 20103304 (Version 4)
Quarter: 2022Q1

REPORT INFORMATION
  Report Type: Spontaneous
  Country: TR (occurrence: TR)
  Receive Date: 20211123
  Receipt Date: 20220124
  Transmission Date: 20220423
  Serious: Yes (Death, Hospitalization, Other)
  Sender: FDA-Public Use
  Company Number: TR-PFIZER INC-202101568734

PATIENT
  Age: 12 Year
  Weight: 23 kg

DRUGS (1)
  1. ELELYSO [Suspect]
     Active Substance: TALIGLUCERASE ALFA
     Dosage: 60 IU
     Dates: start: 2019

REACTIONS (3)
  - Death [Fatal]
  - Splenomegaly [Not Recovered/Not Resolved]
  - Condition aggravated [Not Recovered/Not Resolved]
